FAERS Safety Report 12564013 (Version 1)
Quarter: 2016Q3

REPORT INFORMATION
  Report Type: Spontaneous
  Country: IN (occurrence: IN)
  Receive Date: 20160718
  Receipt Date: 20160718
  Transmission Date: 20161109
  Serious: Yes (Other)
  Sender: FDA-Public Use
  Company Number: IN-ROCHE-1788428

PATIENT
  Age: 57 Year
  Sex: Male
  Weight: 70 kg

DRUGS (4)
  1. TELMISARTAN. [Concomitant]
     Active Substance: TELMISARTAN
  2. ACTEMRA [Suspect]
     Active Substance: TOCILIZUMAB
     Indication: RHEUMATOID ARTHRITIS
     Dosage: 400 MG AND 200 MG
     Route: 042
     Dates: start: 20160622, end: 20160622
  3. LANOL ER [Concomitant]
     Indication: PAIN
     Route: 048
     Dates: start: 20160601
  4. STAMLO [Concomitant]
     Active Substance: AMLODIPINE BESYLATE
     Indication: HYPERTENSION
     Route: 048
     Dates: start: 201510

REACTIONS (8)
  - Blood creatinine increased [Unknown]
  - Mouth ulceration [Recovering/Resolving]
  - Headache [Unknown]
  - Fatigue [Not Recovered/Not Resolved]
  - Neutropenia [Unknown]
  - Acne [Not Recovered/Not Resolved]
  - Weight increased [Not Recovered/Not Resolved]
  - Fluid retention [Not Recovered/Not Resolved]

NARRATIVE: CASE EVENT DATE: 20160622
